FAERS Safety Report 9653637 (Version 2)
Quarter: 2013Q4

REPORT INFORMATION
  Report Type: Spontaneous
  Country: US (occurrence: None)
  Receive Date: 20131028
  Receipt Date: 20131115
  Transmission Date: 20140711
  Serious: Yes (Hospitalization)
  Sender: FDA-Public Use
  Company Number: 2013US001471

PATIENT
  Age: 71 Year
  Sex: Male
  Weight: 104.9 kg

DRUGS (13)
  1. PONATINIB [Suspect]
     Indication: CHRONIC MYELOID LEUKAEMIA
     Route: 048
     Dates: start: 20110422
  2. VITAMIN D (VITAMIN D) [Concomitant]
  3. AMBIEN (ZOLPIDEM TARTRATE) [Concomitant]
  4. COREG (CARVEDILOL) [Concomitant]
  5. PROVENTIL (SALBUTAMOL) [Concomitant]
  6. ALBUTEROL (SALBUTAMOL SULFATE) [Concomitant]
  7. DIOVAN (VALSARTAN) [Concomitant]
  8. TYLENOL (PARACETAMOL) [Concomitant]
  9. TEMAZEPAM (TEMAZEPAM) [Concomitant]
  10. CLARITIN (LORATADINE) [Concomitant]
  11. COLACE [Concomitant]
  12. ECONAZOLE RPG (ECONAZOLE NITRATE) [Concomitant]
  13. ASA (ASA) [Concomitant]

REACTIONS (1)
  - Hyponatraemia [None]
